FAERS Safety Report 5838065-2 (Version None)
Quarter: 2008Q3

REPORT INFORMATION
  Report Type: 
  Country: None (occurrence: None)
  Receive Date: 20080808
  Receipt Date: 20080619
  Transmission Date: 20090109
  Serious: No
  Sender: FDA-Public Use
  Company Number: A0726793A

PATIENT
  Age: 33 Year
  Sex: Female
  Weight: 84.5 kg

DRUGS (2)
  1. PAXIL [Suspect]
     Indication: DEPRESSION
     Dosage: 30MG PER DAY
     Route: 048
     Dates: end: 20080601
  2. VITAMIN TAB [Concomitant]
     Dosage: 1UNIT PER DAY
     Route: 048
     Dates: start: 20080501

REACTIONS (2)
  - BLIGHTED OVUM [None]
  - DRUG EXPOSURE DURING PREGNANCY [None]
